FAERS Safety Report 11273354 (Version 1)
Quarter: 2015Q3

REPORT INFORMATION
  Report Type: Spontaneous
  Country: US (occurrence: US)
  Receive Date: 20150715
  Receipt Date: 20150715
  Transmission Date: 20151125
  Serious: No
  Sender: FDA-Public Use
  Company Number: US-BAUSCH-BL-2014-008489

PATIENT
  Age: 60 Year
  Sex: Female
  Weight: 119.86 kg

DRUGS (4)
  1. LOTEMAX [Suspect]
     Active Substance: LOTEPREDNOL ETABONATE
     Indication: POSTOPERATIVE CARE
     Dosage: 1 DROP THREE TIMES A DAY
     Route: 047
     Dates: start: 20141031, end: 20141105
  2. DIOVAN [Concomitant]
     Active Substance: VALSARTAN
     Indication: PRODUCT USED FOR UNKNOWN INDICATION
  3. PROLENSA [Suspect]
     Active Substance: BROMFENAC SODIUM
     Indication: POSTOPERATIVE CARE
     Dosage: 1 DROP DAILY
     Route: 047
     Dates: start: 20141031, end: 20141105
  4. BESIVANCE [Suspect]
     Active Substance: BESIFLOXACIN
     Indication: POSTOPERATIVE CARE
     Dosage: 1 DROP THREE TIMES A DAY
     Route: 047
     Dates: start: 20141031, end: 20141105

REACTIONS (2)
  - Off label use [None]
  - Vision blurred [Not Recovered/Not Resolved]

NARRATIVE: CASE EVENT DATE: 20141105
